FAERS Safety Report 7489942-0 (Version None)
Quarter: 2011Q2

REPORT INFORMATION
  Report Type: 
  Country: None (occurrence: None)
  Receive Date: 20110512
  Receipt Date: 20110412
  Transmission Date: 20111010
  Serious: Yes (Other)
  Sender: FDA-Public Use
  Company Number: 031094

PATIENT
  Age: 18 Month
  Sex: Female

DRUGS (4)
  1. KEPPRA [Suspect]
     Indication: EPILEPSY
     Dosage: (500 MG BID ORAL)  ; (250 MG BID, DOSE REDUCED ORAL) ; (500 MG BID, DOSE INCREASED ORAL)
     Route: 048
     Dates: start: 20110401, end: 20110401
  2. KEPPRA [Suspect]
     Indication: EPILEPSY
     Dosage: (500 MG BID ORAL)  ; (250 MG BID, DOSE REDUCED ORAL) ; (500 MG BID, DOSE INCREASED ORAL)
     Route: 048
     Dates: start: 20110401, end: 20110401
  3. KEPPRA [Suspect]
     Indication: EPILEPSY
     Dosage: (500 MG BID ORAL)  ; (250 MG BID, DOSE REDUCED ORAL) ; (500 MG BID, DOSE INCREASED ORAL)
     Route: 048
     Dates: start: 20110401
  4. LEVOTHYROXINE SODIUM [Concomitant]

REACTIONS (3)
  - RASH [None]
  - FACE OEDEMA [None]
  - HYPERSENSITIVITY [None]
